FAERS Safety Report 5237182-8 (Version None)
Quarter: 2007Q1

REPORT INFORMATION
  Report Type: 
  Country: None (occurrence: None)
  Receive Date: 20061208
  Receipt Date: 20050323
  Transmission Date: 20070707
  Serious: Yes (Other)
  Sender: FDA-Public Use
  Company Number: 2005UW04571

PATIENT
  Age: 69 Year
  Sex: Female
  Weight: 58.967 kg

DRUGS (5)
  1. CRESTOR [Suspect]
     Indication: BLOOD CHOLESTEROL INCREASED
     Dosage: 10 MG PO
     Route: 048
     Dates: start: 20050301
  2. ATENOLOL [Concomitant]
  3. XANAX [Concomitant]
  4. NEXIUM [Concomitant]
  5. PAXIL [Concomitant]

REACTIONS (2)
  - DRY MOUTH [None]
  - LIP DRY [None]
